FAERS Safety Report 11808229 (Version 1)
Quarter: 2015Q4

REPORT INFORMATION
  Report Type: Spontaneous
  Country: CA (occurrence: CA)
  Receive Date: 20151207
  Receipt Date: 20151207
  Transmission Date: 20160305
  Serious: Yes (Other)
  Sender: FDA-Public Use
  Company Number: CA-TEVA-613915ACC

PATIENT
  Age: 64 Year
  Sex: Female
  Weight: 76.27 kg

DRUGS (9)
  1. CITALOPRAM [Concomitant]
     Active Substance: CITALOPRAM HYDROBROMIDE
  2. ATORVASTATIN CALCIUM. [Concomitant]
     Active Substance: ATORVASTATIN CALCIUM
  3. GABAPENTIN. [Suspect]
     Active Substance: GABAPENTIN
     Indication: FIBROMYALGIA
     Dosage: 300 MILLIGRAM DAILY;
     Route: 048
  4. GABAPENTIN. [Suspect]
     Active Substance: GABAPENTIN
     Dosage: 2400 MILLIGRAM DAILY;
     Route: 048
  5. DEXILANT [Concomitant]
     Active Substance: DEXLANSOPRAZOLE
  6. SYMBICORT [Concomitant]
     Active Substance: BUDESONIDE\FORMOTEROL FUMARATE DIHYDRATE
  7. SYNTHROID [Concomitant]
     Active Substance: LEVOTHYROXINE SODIUM
  8. CALCIUM + VITAMIN D [Concomitant]
     Active Substance: CALCIUM\VITAMIN D
  9. CLONIDINE. [Concomitant]
     Active Substance: CLONIDINE

REACTIONS (9)
  - Headache [Unknown]
  - Vulvovaginal dryness [Unknown]
  - Dysphonia [Unknown]
  - Autoimmune disorder [Unknown]
  - Amnesia [Unknown]
  - Dry mouth [Unknown]
  - Dyskinesia [Unknown]
  - Tooth loss [Unknown]
  - Tremor [Unknown]
